FAERS Safety Report 17674100 (Version 3)
Quarter: 2020Q3

REPORT INFORMATION
  Report Type: Spontaneous
  Country: DE (occurrence: DE)
  Receive Date: 20200415
  Receipt Date: 20200722
  Transmission Date: 20201102
  Serious: Yes (Hospitalization, Other)
  Sender: FDA-Public Use
  Company Number: DE-AUROBINDO-AUR-APL-2020-018040

PATIENT
  Age: 74 Year
  Sex: Male
  Weight: 90 kg

DRUGS (12)
  1. JAKAVI [Suspect]
     Active Substance: RUXOLITINIB
     Indication: PRIMARY MYELOFIBROSIS
     Dosage: 15 MILLIGRAM, TWO TIMES A DAY (1?0?1)
     Route: 048
     Dates: start: 20170621
  2. METOPROLOL. [Concomitant]
     Active Substance: METOPROLOL
     Indication: HYPERTENSION
     Dosage: 95 MILLIGRAM, TWO TIMES A DAY  (1?0?1)
     Route: 065
  3. ACICLOVIR [Suspect]
     Active Substance: ACYCLOVIR
     Indication: RADICULOPATHY
     Dosage: UNK
     Route: 042
     Dates: start: 20170919
  4. ASPIRIN. [Concomitant]
     Active Substance: ASPIRIN
     Indication: CORONARY ARTERY DISEASE
     Dosage: 100 MILLIGRAM, ONCE A DAY (0?1?0)
     Route: 065
  5. THYRONAJOD [Concomitant]
     Active Substance: LEVOTHYROXINE SODIUM\POTASSIUM IODIDE
     Indication: HYPOTHYROIDISM
     Dosage: 75 MICROGRAM, ONCE A DAY(1?0?0)
     Route: 065
  6. CANDESARTAN. [Concomitant]
     Active Substance: CANDESARTAN
     Indication: HYPERTENSION
     Dosage: 24 MILLIGRAM
     Route: 065
  7. CANDESARTAN. [Concomitant]
     Active Substance: CANDESARTAN
     Indication: BLOOD PRESSURE INCREASED
     Dosage: 12 MILLIGRAM, ONCE A DAY8 MILLIGRAM, (1?0?1/2)
     Route: 065
  8. ACICLOVIR [Suspect]
     Active Substance: ACYCLOVIR
     Indication: HERPES ZOSTER
     Dosage: ADMINISTERED TWICE
     Route: 042
     Dates: end: 20171002
  9. PANTOPRAZOLE [Concomitant]
     Active Substance: PANTOPRAZOLE
     Indication: PRODUCT USED FOR UNKNOWN INDICATION
     Dosage: 40 MILLIGRAM, ONCE A DAY(1?0?0)
     Route: 065
  10. TORASEMIDE [Concomitant]
     Active Substance: TORSEMIDE
     Indication: PRODUCT USED FOR UNKNOWN INDICATION
     Dosage: 10 MILLIGRAM, ONCE A DAY (0.5?0?1.5)
     Route: 065
  11. SIMVASTATIN. [Concomitant]
     Active Substance: SIMVASTATIN
     Indication: HYPERCHOLESTEROLAEMIA
     Dosage: 20 MILLIGRAM, ONCE A DAY (0?0?1)
     Route: 065
  12. LEVOTHYROXINE. [Concomitant]
     Active Substance: LEVOTHYROXINE
     Indication: PRODUCT USED FOR UNKNOWN INDICATION
     Dosage: 75 MICROGRAM
     Route: 065

REACTIONS (14)
  - Rash [Recovered/Resolved]
  - Muscle twitching [Unknown]
  - Neuralgia [Unknown]
  - Varicella zoster virus infection [Recovering/Resolving]
  - Blood creatinine increased [Recovered/Resolved]
  - Back pain [Unknown]
  - Microangiopathy [Not Recovered/Not Resolved]
  - Cerebral ischaemia [Not Recovered/Not Resolved]
  - Blood pressure increased [Unknown]
  - Radiculopathy [Recovering/Resolving]
  - Paresis [Unknown]
  - Hypertension [Unknown]
  - Neuropathy peripheral [Unknown]
  - Vertebral artery stenosis [Unknown]

NARRATIVE: CASE EVENT DATE: 201709
